FAERS Safety Report 5261554-9 (Version None)
Quarter: 2007Q1

REPORT INFORMATION
  Report Type: 
  Country: None (occurrence: None)
  Receive Date: 20070307
  Receipt Date: 20070228
  Transmission Date: 20070707
  Serious: Yes (Death)
  Sender: FDA-Public Use
  Company Number: 237494

PATIENT
  Age: 50 Year
  Sex: Male

DRUGS (2)
  1. ACTILYSE (ALTEPLASE) PWDR + SOLVENT, INFUSION SOLN [Suspect]
     Indication: PULMONARY EMBOLISM
     Dosage: 70 MG, SINGLE, INTRAVENOUS
     Route: 042
     Dates: start: 20070224, end: 20070224
  2. HEPARIN [Concomitant]

REACTIONS (1)
  - DEATH [None]
